FAERS Safety Report 4726221-6 (Version None)
Quarter: 2005Q3

REPORT INFORMATION
  Report Type: 
  Country: None (occurrence: None)
  Receive Date: 20050725
  Receipt Date: 20050725
  Transmission Date: 20060218
  Serious: Yes (Hospitalization, Other)
  Sender: FDA-Public Use
  Company Number: None

PATIENT
  Sex: Male
  Weight: 79 kg

DRUGS (7)
  1. RITUXIMAB [Suspect]
     Indication: DIFFUSE LARGE B-CELL LYMPHOMA
     Dosage: SEE IMAGE
     Dates: start: 20050124
  2. ETOPOSIDE [Suspect]
     Dosage: SEE IMAGE
     Route: 042
     Dates: end: 20050127
  3. DOXORUBICIN [Suspect]
     Dosage: SEE IMAGE
     Route: 042
     Dates: end: 20050127
  4. VINCRISTINE [Suspect]
     Dosage: SEE IMAGE
     Route: 042
     Dates: end: 20050127
  5. PREDNISONE [Suspect]
     Dosage: SEE IMAGE
     Route: 048
     Dates: end: 20050128
  6. CYCLOPHOSPHAMIDE [Suspect]
  7. G-CSF [Suspect]
     Dates: end: 20050207

REACTIONS (3)
  - CHILLS [None]
  - ENTEROBACTER BACTERAEMIA [None]
  - PYREXIA [None]
